FAERS Safety Report 8456811-9 (Version None)
Quarter: 2012Q2

REPORT INFORMATION
  Report Type: 
  Country: None (occurrence: None)
  Receive Date: 20120621
  Receipt Date: 20120608
  Transmission Date: 20120825
  Serious: Yes (Death, Hospitalization)
  Sender: FDA-Public Use
  Company Number: US-PFIZER INC-2011233570

PATIENT
  Sex: Female

DRUGS (3)
  1. DILANTIN [Suspect]
     Indication: CONVULSION
     Dosage: UNK
     Route: 042
     Dates: start: 20090513
  2. DILANTIN-125 [Suspect]
     Indication: CONVULSION
     Dosage: 100 MG, FOR EVERY 8 HOURS
     Route: 048
  3. DILANTIN-125 [Suspect]
     Dosage: 100 MG EVERY DAY BEFORE NOON AND 300 MG BEDTIME
     Route: 048
     Dates: start: 20090518, end: 20090601

REACTIONS (1)
  - STEVENS-JOHNSON SYNDROME [None]
